FAERS Safety Report 4611060-7 (Version None)
Quarter: 2005Q1

REPORT INFORMATION
  Report Type: 
  Country: None (occurrence: None)
  Receive Date: 20050315
  Receipt Date: 20050315
  Transmission Date: 20050727
  Serious: Yes (Other)
  Sender: FDA-Public Use
  Company Number: None

PATIENT
  Age: 42 Year
  Sex: Male
  Weight: 112.9457 kg

DRUGS (8)
  1. DESYREL [Suspect]
     Indication: INSOMNIA
     Dosage: 150MG HS
     Dates: start: 20040801
  2. DESYREL [Suspect]
     Indication: SCHIZOPHRENIA
     Dosage: 150MG HS
     Dates: start: 20040801
  3. LEXAPRO [Concomitant]
  4. EFFEXOR XR [Concomitant]
  5. RISPERDAL [Concomitant]
  6. DEPAKOTE [Concomitant]
  7. VISTARIL [Concomitant]
  8. BUSPAR [Concomitant]

REACTIONS (2)
  - DRUG INEFFECTIVE [None]
  - PHARMACEUTICAL PRODUCT COMPLAINT [None]
